FAERS Safety Report 6771089-X (Version None)
Quarter: 2010Q2

REPORT INFORMATION
  Report Type: 
  Country: None (occurrence: None)
  Receive Date: 20100616
  Receipt Date: 20100607
  Transmission Date: 20101027
  Serious: No
  Sender: FDA-Public Use
  Company Number: US-JNJFOC-20100507654

PATIENT
  Sex: Female
  Weight: 53.07 kg

DRUGS (8)
  1. FENTANYL [Suspect]
     Indication: SPINAL CORD NEOPLASM
     Route: 062
  2. FENTANYL [Suspect]
     Route: 062
  3. DETROL [Concomitant]
     Indication: BLADDER DISORDER
     Route: 048
  4. ALLEGRA [Concomitant]
     Indication: MULTIPLE ALLERGIES
     Route: 048
  5. OXYMORPHONE [Concomitant]
     Indication: PAIN
     Route: 048
  6. DIAZEPAM [Concomitant]
     Indication: MUSCLE SPASMS
     Route: 048
  7. BACLOFEN [Concomitant]
     Indication: DRUG USE FOR UNKNOWN INDICATION
     Route: 048
  8. LANSOPRAZOLE [Concomitant]
     Indication: GASTRIC DISORDER
     Route: 048

REACTIONS (6)
  - ADVERSE EVENT [None]
  - MULTIPLE ALLERGIES [None]
  - MUSCLE SPASMS [None]
  - PAIN [None]
  - PRODUCT QUALITY ISSUE [None]
  - WRONG TECHNIQUE IN DRUG USAGE PROCESS [None]
